FAERS Safety Report 8912820 (Version 2)
Quarter: 2013Q1

REPORT INFORMATION
  Report Type: Spontaneous
  Country: US (occurrence: US)
  Receive Date: 20121116
  Receipt Date: 20130102
  Transmission Date: 20140127
  Serious: No
  Sender: FDA-Public Use
  Company Number: US-PFIZER INC-2012284501

PATIENT
  Age: 57 Year
  Sex: Female
  Weight: 63.49 kg

DRUGS (1)
  1. PRISTIQ [Suspect]
     Indication: DEPRESSION
     Dosage: 25 MG, 1X/DAY (BY SPLITTING 50 MG TABLETS INTO HALF DAILY AT NIGHT)
     Route: 048
     Dates: start: 201210, end: 201210

REACTIONS (3)
  - Drug ineffective [Unknown]
  - Insomnia [Unknown]
  - Diarrhoea [Recovered/Resolved]
